FAERS Safety Report 8336157-X (Version None)
Quarter: 2012Q1

REPORT INFORMATION
  Report Type: 
  Country: None (occurrence: None)
  Receive Date: 20120329
  Receipt Date: 20091111
  Transmission Date: 20120608
  Serious: Yes (Other)
  Sender: FDA-Public Use
  Company Number: PHEH2009US15643

PATIENT
  Age: 71 Year
  Sex: Male

DRUGS (6)
  1. EXELON [Suspect]
     Dosage: 9.5 MG, TRANSDERMAL
     Route: 062
  2. MULTIVITAMINS (ASCORBIC ACID, ERGOCALCIFEROL, FOLIC ACID, NICOTINAMIDE [Concomitant]
  3. FISH OIL (FISH OIL) [Concomitant]
  4. ANTIHYPERTENSIVES (NO INGREDIENTS/SUBSTANCES) [Concomitant]
  5. METFORMIN HCL [Concomitant]
  6. DIURETICS (NO INGREDIENTS/SUBSTANCES) [Concomitant]

REACTIONS (3)
  - SLEEP DISORDER [None]
  - CONFUSIONAL STATE [None]
  - LIMB INJURY [None]
